FAERS Safety Report 10730283 (Version 1)
Quarter: 2015Q1

REPORT INFORMATION
  Report Type: Spontaneous
  Country: US (occurrence: None)
  Receive Date: 20150121
  Receipt Date: 20150121
  Transmission Date: 20150721
  Serious: Yes (Disabling)
  Sender: FDA-Public Use
  Company Number: None

PATIENT
  Age: 33 Year
  Sex: Male
  Weight: 86.18 kg

DRUGS (1)
  1. PROPECIA [Suspect]
     Active Substance: FINASTERIDE
     Indication: ALOPECIA

REACTIONS (14)
  - Night sweats [None]
  - Penis disorder [None]
  - Seizure [None]
  - Vitreous floaters [None]
  - Peripheral coldness [None]
  - Palpitations [None]
  - Body temperature decreased [None]
  - Tinnitus [None]
  - Dyspnoea [None]
  - Pupillary reflex impaired [None]
  - Testicular disorder [None]
  - Confusional state [None]
  - Brain injury [None]
  - Ocular hyperaemia [None]

NARRATIVE: CASE EVENT DATE: 20150120
